FAERS Safety Report 18783895 (Version 4)
Quarter: 2021Q2

REPORT INFORMATION
  Report Type: Spontaneous
  Country: GB (occurrence: GB)
  Receive Date: 20210125
  Receipt Date: 20210622
  Transmission Date: 20210717
  Serious: Yes (Other)
  Sender: FDA-Public Use
  Company Number: GB-GLAXOSMITHKLINE-GB2021EME011160

PATIENT
  Sex: Male

DRUGS (2)
  1. NUCALA [Suspect]
     Active Substance: MEPOLIZUMAB
     Indication: PRODUCT USED FOR UNKNOWN INDICATION
     Dosage: 100 MG, Z, EVERY 4 WEEKS
     Route: 058
  2. LANSOPRAZOLE. [Suspect]
     Active Substance: LANSOPRAZOLE
     Indication: PRODUCT USED FOR UNKNOWN INDICATION
     Dosage: UNK

REACTIONS (14)
  - Angina pectoris [Unknown]
  - Wheezing [Unknown]
  - Pain [Unknown]
  - Chest discomfort [Unknown]
  - Gastrooesophageal reflux disease [Unknown]
  - Cholelithiasis [Unknown]
  - Cough [Unknown]
  - Insomnia [Unknown]
  - Lower respiratory tract infection [Unknown]
  - Atrial fibrillation [Unknown]
  - Foreign body in throat [Unknown]
  - Chest pain [Unknown]
  - Stress [Unknown]
  - Dyspnoea [Unknown]
